FAERS Safety Report 5826015-4 (Version None)
Quarter: 2008Q3

REPORT INFORMATION
  Report Type: 
  Country: None (occurrence: None)
  Receive Date: 20080729
  Receipt Date: 20080518
  Transmission Date: 20090109
  Serious: Yes (Death, Hospitalization, Other)
  Sender: FDA-Public Use
  Company Number: IE-ROCHE-478932

PATIENT
  Sex: Female
  Weight: 73 kg

DRUGS (4)
  1. XELODA [Suspect]
     Indication: DRUG USE FOR UNKNOWN INDICATION
     Route: 048
     Dates: start: 20070103, end: 20070111
  2. CELLCEPT [Concomitant]
     Indication: GRAFT VERSUS HOST DISEASE
  3. CYCLOSPORINE [Concomitant]
     Indication: GRAFT VERSUS HOST DISEASE
  4. PREDNISOLONE [Concomitant]
     Indication: GRAFT VERSUS HOST DISEASE
     Dosage: STRENGTH: 50 MB

REACTIONS (6)
  - CYTOMEGALOVIRUS INFECTION [None]
  - DRUG DISPENSING ERROR [None]
  - GRAFT VERSUS HOST DISEASE [None]
  - HEPATIC FUNCTION ABNORMAL [None]
  - LIVER FUNCTION TEST ABNORMAL [None]
  - RASH [None]
